FAERS Safety Report 9011535 (Version 2)
Quarter: 2013Q1

REPORT INFORMATION
  Report Type: Spontaneous
  Country: GB (occurrence: GB)
  Receive Date: 20130108
  Receipt Date: 20130225
  Transmission Date: 20140127
  Serious: Yes (Other)
  Sender: FDA-Public Use
  Company Number: GB-JNJFOC-20130100313

PATIENT
  Age: 48 Year
  Sex: Female

DRUGS (11)
  1. SIMPONI [Suspect]
     Indication: PSORIATIC ARTHROPATHY
     Route: 058
     Dates: start: 20120808
  2. SIMPONI [Suspect]
     Indication: PSORIATIC ARTHROPATHY
     Route: 058
     Dates: start: 20121108, end: 20121108
  3. MELOXICAM [Concomitant]
     Route: 065
  4. ALENDRONIC ACID [Concomitant]
     Route: 065
  5. FOLIC ACID [Concomitant]
     Route: 065
  6. AMITRIPTYLINE [Concomitant]
     Route: 065
  7. THYROXINE [Concomitant]
     Route: 065
  8. CITALOPRAM [Concomitant]
     Route: 065
  9. METHOTREXATE [Concomitant]
     Route: 065
     Dates: end: 20121227
  10. PREDNISOLONE [Concomitant]
     Indication: PSORIATIC ARTHROPATHY
     Route: 065
  11. PREDNISOLONE [Concomitant]
     Indication: PSORIATIC ARTHROPATHY
     Route: 065

REACTIONS (2)
  - Pertussis [Recovering/Resolving]
  - Lower respiratory tract infection [Recovering/Resolving]
